FAERS Safety Report 7293494-8 (Version None)
Quarter: 2011Q1

REPORT INFORMATION
  Report Type: 
  Country: None (occurrence: None)
  Receive Date: 20110215
  Receipt Date: 20110207
  Transmission Date: 20110831
  Serious: Yes (Other)
  Sender: FDA-Public Use
  Company Number: B0698642A

PATIENT
  Age: 23 Year
  Sex: Female

DRUGS (1)
  1. NIQUITIN CQ CLEAR 14MG [Suspect]
     Indication: PRODUCT USED FOR UNKNOWN INDICATION
     Route: 062

REACTIONS (6)
  - DEPRESSED MOOD [None]
  - DYSPNOEA [None]
  - CRYING [None]
  - HALLUCINATION [None]
  - SCREAMING [None]
  - HEADACHE [None]
